FAERS Safety Report 5760326-6 (Version None)
Quarter: 2008Q2

REPORT INFORMATION
  Report Type: 
  Country: None (occurrence: None)
  Receive Date: 20080605
  Receipt Date: 20080521
  Transmission Date: 20081010
  Serious: Yes (Life-Threatening)
  Sender: FDA-Public Use
  Company Number: JP-GENENTECH-260428

PATIENT
  Sex: Male
  Weight: 80 kg

DRUGS (7)
  1. AVASTIN [Suspect]
     Indication: RECTAL CANCER
     Dosage: 5 MG/KG, Q2W
     Route: 041
     Dates: start: 20080217
  2. OXALIPLATIN [Suspect]
     Indication: RECTAL CANCER
     Dosage: 100 MG, 2/WEEK
     Route: 041
     Dates: start: 20080108, end: 20080423
  3. ISOVORIN [Suspect]
     Indication: DRUG USE FOR UNKNOWN INDICATION
     Dosage: 250 MG, Q2W
     Route: 042
     Dates: start: 20080108, end: 20080423
  4. FLUOROURACIL [Concomitant]
     Indication: DRUG USE FOR UNKNOWN INDICATION
  5. GRANISETRON HCL [Concomitant]
     Indication: DRUG USE FOR UNKNOWN INDICATION
     Dates: start: 20080108, end: 20080423
  6. DEXAMETHASONE TAB [Concomitant]
     Indication: DRUG USE FOR UNKNOWN INDICATION
     Dates: start: 20080108, end: 20080423
  7. TROPISETRON [Concomitant]
     Indication: DRUG USE FOR UNKNOWN INDICATION
     Dates: start: 20080110, end: 20080414

REACTIONS (3)
  - ERYTHEMA [None]
  - RASH [None]
  - SHOCK [None]
